FAERS Safety Report 24178951 (Version 1)
Quarter: 2024Q3

REPORT INFORMATION
  Report Type: Report from Study
  Country: US (occurrence: US)
  Receive Date: 20240806
  Receipt Date: 20240806
  Transmission Date: 20241016
  Serious: Yes (Hospitalization)
  Sender: UCB
  Company Number: US-UCBSA-2024039291

PATIENT
  Age: 45 Year
  Sex: Male

DRUGS (1)
  1. BIMEKIZUMAB [Suspect]
     Active Substance: BIMEKIZUMAB
     Indication: Psoriasis
     Dosage: 320 MILLIGRAM, EV 4 WEEKS

REACTIONS (3)
  - Staphylococcal infection [Recovered/Resolved]
  - Staphylococcal skin infection [Recovered/Resolved]
  - Exposure to toxic agent [Recovered/Resolved]

NARRATIVE: CASE EVENT DATE: 20240723
